FAERS Safety Report 20700916 (Version 1)
Quarter: 2022Q2

REPORT INFORMATION
  Report Type: Spontaneous
  Country: US (occurrence: US)
  Receive Date: 20220412
  Receipt Date: 20220412
  Transmission Date: 20220721
  Serious: Yes (Other)
  Sender: FDA-Public Use
  Company Number: US-ASTELLAS-2021US041120

PATIENT
  Age: 64 Year
  Sex: Male

DRUGS (3)
  1. PROGRAF [Suspect]
     Active Substance: TACROLIMUS
     Indication: Product used for unknown indication
     Dosage: 0.5 MG, EVERY 12 HOURS
     Route: 065
  2. PROGRAF [Suspect]
     Active Substance: TACROLIMUS
     Dosage: UNK, UNKNOWN FREQ.
     Route: 065
  3. SIROLIMUS [Suspect]
     Active Substance: SIROLIMUS
     Indication: Liver transplant
     Dosage: 1 MG (0.5MG, TWO TABLETS), ONCE DAILY
     Route: 048
     Dates: start: 202107

REACTIONS (3)
  - Rash pruritic [Unknown]
  - Rash erythematous [Unknown]
  - Liver function test increased [Recovered/Resolved]
